FAERS Safety Report 4353114-9 (Version None)
Quarter: 2004Q2

REPORT INFORMATION
  Report Type: 
  Country: None (occurrence: None)
  Receive Date: 20040429
  Receipt Date: 20040416
  Transmission Date: 20050107
  Serious: Yes (Death)
  Sender: FDA-Public Use
  Company Number: 2004AP02162

PATIENT
  Age: 74 Year
  Sex: Male

DRUGS (7)
  1. IRESSA [Suspect]
     Indication: ADENOCARCINOMA
     Dosage: 250 MG DAILY PO
     Route: 048
  2. IRESSA [Suspect]
     Indication: LUNG NEOPLASM MALIGNANT
     Dosage: 250 MG DAILY PO
     Route: 048
  3. GASTER D [Concomitant]
  4. RIZE [Concomitant]
  5. ATARAX [Concomitant]
  6. HEAVY MAGNESIUM OXIDE [Concomitant]
  7. TERRA-CORTRIL [Concomitant]

REACTIONS (5)
  - ACUTE MYOCARDIAL INFARCTION [None]
  - AGONAL DEATH STRUGGLE [None]
  - ATRIOVENTRICULAR BLOCK FIRST DEGREE [None]
  - RESPIRATORY ARREST [None]
  - SKIN DISORDER [None]
